FAERS Safety Report 6885083-1 (Version None)
Quarter: 2010Q3

REPORT INFORMATION
  Report Type: 
  Country: None (occurrence: None)
  Receive Date: 20100729
  Receipt Date: 20071119
  Transmission Date: 20110219
  Serious: Yes (Hospitalization)
  Sender: FDA-Public Use
  Company Number: US-PFIZER INC-2007097561

PATIENT
  Sex: Female
  Weight: 84.09 kg

DRUGS (1)
  1. CELEBREX [Suspect]
     Indication: LOWER LIMB FRACTURE
     Dates: start: 19930101, end: 20030101

REACTIONS (2)
  - HYPERSENSITIVITY [None]
  - RASH [None]
